FAERS Safety Report 4313994-X (Version None)
Quarter: 2004Q1

REPORT INFORMATION
  Report Type: 
  Country: None (occurrence: None)
  Receive Date: 20040309
  Receipt Date: 20031216
  Transmission Date: 20041129
  Serious: No
  Sender: FDA-Public Use
  Company Number: PHBS2003JP14087

PATIENT
  Sex: Female

DRUGS (1)
  1. GLEEVEC [Suspect]
     Indication: CHRONIC MYELOID LEUKAEMIA
     Dosage: 400 MG/D
     Route: 048

REACTIONS (3)
  - DYSGEUSIA [None]
  - PAROSMIA [None]
  - SINUSITIS [None]
